FAERS Safety Report 19013283 (Version 3)
Quarter: 2021Q2

REPORT INFORMATION
  Report Type: Report from Study
  Country: CA (occurrence: CA)
  Receive Date: 20210315
  Receipt Date: 20210630
  Transmission Date: 20210717
  Serious: Yes (Other)
  Sender: FDA-Public Use
  Company Number: CA-PFIZER INC-2021239531

PATIENT
  Age: 65 Year
  Sex: Male

DRUGS (3)
  1. PANTOLOC [Suspect]
     Active Substance: PANTOPRAZOLE SODIUM
     Dosage: UNK, 1X/DAY
     Route: 065
  2. ENTYVIO [Suspect]
     Active Substance: VEDOLIZUMAB
     Indication: CROHN^S DISEASE
     Dosage: 300 MG (WEEK 0, 2, 6 EVERY 8 WEEKS)
     Route: 042
     Dates: start: 20210217
  3. ENTYVIO [Suspect]
     Active Substance: VEDOLIZUMAB
     Dosage: 300 MG
     Route: 042

REACTIONS (12)
  - Faecal calprotectin increased [Unknown]
  - Chest pain [Unknown]
  - Productive cough [Unknown]
  - Wheezing [Unknown]
  - Pneumonia bacterial [Unknown]
  - Fatigue [Unknown]
  - Haemorrhage [Recovering/Resolving]
  - Pain [Unknown]
  - Chest discomfort [Unknown]
  - Respiratory tract congestion [Unknown]
  - Constipation [Unknown]
  - Muscle spasms [Recovering/Resolving]

NARRATIVE: CASE EVENT DATE: 202102
